FAERS Safety Report 6439490-1 (Version None)
Quarter: 2009Q4

REPORT INFORMATION
  Report Type: 
  Country: None (occurrence: None)
  Receive Date: 20091113
  Receipt Date: 20091110
  Transmission Date: 20100525
  Serious: Yes (Hospitalization, Congenital Anomaly)
  Sender: FDA-Public Use
  Company Number: A0679290A

PATIENT
  Sex: Male

DRUGS (2)
  1. PAXIL [Suspect]
     Indication: DEPRESSION
  2. TYLENOL (CAPLET) [Concomitant]

REACTIONS (16)
  - ABSCESS FUNGAL [None]
  - ANAEMIA NEONATAL [None]
  - BRONCHOPULMONARY DYSPLASIA [None]
  - CARDIAC DISORDER [None]
  - DIAPHRAGMATIC PARALYSIS [None]
  - DRUG EXPOSURE DURING PREGNANCY [None]
  - ENTEROBACTER PNEUMONIA [None]
  - FUNGAL SEPSIS [None]
  - HYPOTENSION [None]
  - MATERNAL DRUGS AFFECTING FOETUS [None]
  - OSTEOPENIA [None]
  - PATENT DUCTUS ARTERIOSUS [None]
  - PREMATURE BABY [None]
  - PULMONARY HYPERTENSION [None]
  - RENAL FAILURE [None]
  - RETINOPATHY OF PREMATURITY [None]
